FAERS Safety Report 15391188 (Version 2)
Quarter: 2018Q4

REPORT INFORMATION
  Report Type: Spontaneous
  Country: JP (occurrence: JP)
  Receive Date: 20180917
  Receipt Date: 20181030
  Transmission Date: 20190204
  Serious: Yes (Death)
  Sender: FDA-Public Use
  Company Number: JP-BAYER-2018-169120

PATIENT
  Age: 73 Year
  Sex: Female

DRUGS (10)
  1. BIO-THREE [Concomitant]
     Active Substance: HERBALS
  2. OXINORM [ORGOTEIN] [Concomitant]
  3. MAGNESIUM OXIDE. [Concomitant]
     Active Substance: MAGNESIUM OXIDE
  4. STIVARGA [Suspect]
     Active Substance: REGORAFENIB
     Indication: METASTASES TO LIVER
  5. ATORVASTATIN [Concomitant]
     Active Substance: ATORVASTATIN
  6. AMITIZA [Concomitant]
     Active Substance: LUBIPROSTONE
  7. DAIPHEN [Concomitant]
     Active Substance: SULFAMETHOXAZOLE\TRIMETHOPRIM
     Indication: URINARY TRACT INFECTION
     Dosage: UNK
     Dates: start: 20171228
  8. OXYCONTIN [Concomitant]
     Active Substance: OXYCODONE HYDROCHLORIDE
  9. LOXONIN [Concomitant]
     Active Substance: LOXOPROFEN SODIUM
  10. STIVARGA [Suspect]
     Active Substance: REGORAFENIB
     Indication: COLON CANCER
     Dosage: DAILY DOSE 160 MG
     Route: 048
     Dates: start: 20171221

REACTIONS (4)
  - Dysgeusia [Recovering/Resolving]
  - Metastases to liver [Fatal]
  - Colon cancer [Fatal]
  - Nausea [Recovering/Resolving]

NARRATIVE: CASE EVENT DATE: 20180104
